FAERS Safety Report 9226334 (Version 1)
Quarter: 2013Q2

REPORT INFORMATION
  Report Type: Spontaneous
  Country: DK (occurrence: FR)
  Receive Date: 20130411
  Receipt Date: 20130411
  Transmission Date: 20140414
  Serious: Yes (Other)
  Sender: FDA-Public Use
  Company Number: FR-FRI-1000044218

PATIENT
  Age: 37 Year
  Sex: Female
  Weight: 65 kg

DRUGS (4)
  1. ESCITALOPRAM [Suspect]
     Indication: DEPRESSION
     Dosage: 10 MG
     Route: 048
     Dates: start: 20130131, end: 20130201
  2. IBUPROFENE [Concomitant]
     Indication: PAIN
     Dosage: 1200 MG
     Route: 048
     Dates: start: 20130131, end: 20130201
  3. BIOCALIPTOL [Concomitant]
     Indication: COUGH
     Dosage: 4 DF
     Route: 048
     Dates: start: 20130131, end: 20130201
  4. QLAIRA [Concomitant]
     Indication: CONTRACEPTION
     Dosage: 1 DF
     Route: 048
     Dates: start: 20121022

REACTIONS (1)
  - Burning sensation [Recovered/Resolved]
